FAERS Safety Report 19581487 (Version 6)
Quarter: 2022Q1

REPORT INFORMATION
  Report Type: Spontaneous
  Country: US (occurrence: US)
  Receive Date: 20210720
  Receipt Date: 20220121
  Transmission Date: 20220423
  Serious: No
  Sender: FDA-Public Use
  Company Number: US-GLAXOSMITHKLINE-US2021151876

PATIENT
  Sex: Female

DRUGS (6)
  1. ZEJULA [Suspect]
     Active Substance: NIRAPARIB
     Indication: Ovarian cancer
     Dosage: 300 MG, QD
     Route: 048
     Dates: start: 20210520
  2. ZEJULA [Suspect]
     Active Substance: NIRAPARIB
     Dosage: 300 MG, QD
     Route: 048
     Dates: start: 2021
  3. ZEJULA [Suspect]
     Active Substance: NIRAPARIB
     Dosage: 300 MG, QD (QPM)
     Route: 048
     Dates: start: 2021
  4. ZEJULA [Suspect]
     Active Substance: NIRAPARIB
     Dosage: 300 MG, QD
     Route: 048
  5. ZEJULA [Suspect]
     Active Substance: NIRAPARIB
     Dosage: 300 MG, QD
     Route: 048
  6. AUGMENTIN [Suspect]
     Active Substance: AMOXICILLIN\CLAVULANATE POTASSIUM
     Indication: Sinusitis
     Dosage: UNK

REACTIONS (11)
  - Carbohydrate antigen 125 increased [Recovered/Resolved]
  - Platelet count decreased [Recovering/Resolving]
  - Sinusitis [Unknown]
  - Feeling abnormal [Unknown]
  - Headache [Unknown]
  - Somnolence [Unknown]
  - Abdominal discomfort [Unknown]
  - Computerised tomogram abnormal [Unknown]
  - Fatigue [Unknown]
  - Hot flush [Unknown]
  - Product dose omission issue [Unknown]
